FAERS Safety Report 8384477-5 (Version None)
Quarter: 2012Q2

REPORT INFORMATION
  Report Type: 
  Country: None (occurrence: None)
  Receive Date: 20120524
  Receipt Date: 20120516
  Transmission Date: 20120825
  Serious: Yes (Other)
  Sender: FDA-Public Use
  Company Number: GB-JNJFOC-20120516370

PATIENT
  Sex: Male

DRUGS (5)
  1. RITONAVIR [Suspect]
     Dosage: APPROXIMATELY 2-3 YEARS AGO
     Route: 065
  2. RITONAVIR [Suspect]
     Indication: PRODUCT USED FOR UNKNOWN INDICATION
     Route: 065
  3. PREZISTA [Suspect]
     Indication: HIV INFECTION
     Route: 048
  4. TRUVADA [Concomitant]
     Route: 065
  5. PREZISTA [Suspect]
     Dosage: APPROXIMATELY 2-3 YEARS AGO
     Route: 048

REACTIONS (3)
  - C-REACTIVE PROTEIN INCREASED [None]
  - ERYTHEMA NODOSUM [None]
  - POLYARTHRITIS [None]
